FAERS Safety Report 8819926 (Version 1)
Quarter: 2012Q4

REPORT INFORMATION
  Report Type: 
  Country: US (occurrence: US)
  Receive Date: 20121001
  Receipt Date: 20121001
  Transmission Date: 20130627
  Serious: No
  Sender: FDA-Public Use
  Company Number: US-009507513-1209USA011296

PATIENT
  Age: 58 Year
  Sex: Male
  Weight: 109.75 kg

DRUGS (5)
  1. VICTRELIS [Suspect]
     Dosage: 800 mg, tid
  2. REBETOL [Suspect]
  3. PEGASYS [Suspect]
  4. GINSENG (UNSPECIFIED) [Concomitant]
  5. VITAMIN D (UNSPECIFIED) [Concomitant]

REACTIONS (2)
  - Influenza like illness [Unknown]
  - Neutropenia [Unknown]
